FAERS Safety Report 15585679 (Version 1)
Quarter: 2018Q4

REPORT INFORMATION
  Report Type: Report from Study
  Country: None (occurrence: AU)
  Receive Date: 20181105
  Receipt Date: 20181105
  Transmission Date: 20190205
  Serious: Yes (Other)
  Sender: FDA-Public Use
  Company Number: AU-ABBVIE-18S-008-2537905-00

PATIENT
  Age: 74 Year
  Sex: Male

DRUGS (1)
  1. LUCRIN DEPOT [Suspect]
     Active Substance: LEUPROLIDE ACETATE
     Indication: PROSTATE CANCER
     Route: 030
     Dates: start: 20180813

REACTIONS (1)
  - Skin lesion [Not Recovered/Not Resolved]

NARRATIVE: CASE EVENT DATE: 201810
